FAERS Safety Report 12506128 (Version 1)
Quarter: 2016Q2

REPORT INFORMATION
  Report Type: Spontaneous
  Country: US (occurrence: US)
  Receive Date: 20160628
  Receipt Date: 20160628
  Transmission Date: 20160815
  Serious: Yes (Other)
  Sender: FDA-Public Use
  Company Number: US-CELGENEUS-USA-2016066039

PATIENT
  Age: 81 Year
  Sex: Female

DRUGS (2)
  1. REVLIMID [Suspect]
     Active Substance: LENALIDOMIDE
     Indication: ENDOCRINE NEOPLASM
     Dosage: 10 MILLIGRAM
     Route: 048
     Dates: start: 20150715
  2. REVLIMID [Suspect]
     Active Substance: LENALIDOMIDE
     Indication: PLASMA CELL MYELOMA

REACTIONS (2)
  - Lethargy [Unknown]
  - Somnolence [Unknown]

NARRATIVE: CASE EVENT DATE: 20160501
